FAERS Safety Report 23508614 (Version 1)
Quarter: 2024Q1

REPORT INFORMATION
  Report Type: Spontaneous
  Country: US (occurrence: None)
  Receive Date: 20240209
  Receipt Date: 20240209
  Transmission Date: 20240410
  Serious: Yes (Life-Threatening, Hospitalization)
  Sender: FDA-Public Use
  Company Number: 2024A030443

PATIENT
  Age: 74 Year
  Sex: Male

DRUGS (8)
  1. ROSUVASTATIN [Interacting]
     Active Substance: ROSUVASTATIN
     Route: 048
  2. CYCLOSPORINE [Interacting]
     Active Substance: CYCLOSPORINE
  3. CYCLOSPORINE [Interacting]
     Active Substance: CYCLOSPORINE
  4. LEFLUNOMIDE [Interacting]
     Active Substance: LEFLUNOMIDE
  5. NIFEDIPINE [Concomitant]
     Active Substance: NIFEDIPINE
  6. CARVEDILOL [Concomitant]
     Active Substance: CARVEDILOL
  7. PREDNISONE [Concomitant]
     Active Substance: PREDNISONE
  8. MYCOPHENOLATE SODIUM [Concomitant]
     Active Substance: MYCOPHENOLATE SODIUM
     Dosage: 180 MG TWICE DAILY.

REACTIONS (3)
  - Drug interaction [Unknown]
  - Acute kidney injury [Unknown]
  - Rhabdomyolysis [Unknown]
